FAERS Safety Report 6167126-6 (Version None)
Quarter: 2009Q2

REPORT INFORMATION
  Report Type: 
  Country: None (occurrence: None)
  Receive Date: 20090424
  Receipt Date: 20090413
  Transmission Date: 20091009
  Serious: Yes (Death)
  Sender: FDA-Public Use
  Company Number: US-TYCO HEALTHCARE/MALLINCKRODT-T200900877

PATIENT
  Age: 16 Month
  Sex: Male

DRUGS (5)
  1. OXYCODONE HCL [Suspect]
     Route: 048
  2. TRAMADOL HCL [Suspect]
     Route: 048
  3. DIPHENHYDRAMINE HCL [Suspect]
     Route: 048
  4. NAPROXEN [Suspect]
     Route: 048
  5. CIMETIDINE HCL [Suspect]
     Route: 048

REACTIONS (2)
  - DRUG ABUSE [None]
  - RESPIRATORY ARREST [None]
